FAERS Safety Report 6535657-2 (Version None)
Quarter: 2009Q4

REPORT INFORMATION
  Report Type: 
  Country: None (occurrence: None)
  Receive Date: 20091228
  Receipt Date: 20090128
  Transmission Date: 20100525
  Serious: Yes (Hospitalization)
  Sender: FDA-Public Use
  Company Number: US-002409

PATIENT
  Age: 79 Year
  Sex: Female
  Weight: 58 kg

DRUGS (3)
  1. MULTIHANCE [Suspect]
     Indication: BLEPHAROSPASM
     Dosage: 17 ML INTRAVENOUS
     Route: 042
     Dates: start: 20090126, end: 20090126
  2. MULTIHANCE [Suspect]
     Indication: FACIAL PALSY
     Dosage: 17 ML INTRAVENOUS
     Route: 042
     Dates: start: 20090126, end: 20090126
  3. MULTIHANCE [Suspect]
     Indication: NUCLEAR MAGNETIC RESONANCE IMAGING BRAIN
     Dosage: 17 ML INTRAVENOUS
     Route: 042
     Dates: start: 20090126, end: 20090126

REACTIONS (1)
  - ANAPHYLACTIC REACTION [None]
